FAERS Safety Report 9227555 (Version 1)
Quarter: 2013Q2

REPORT INFORMATION
  Report Type: Spontaneous
  Country: US (occurrence: None)
  Receive Date: 20130411
  Receipt Date: 20130411
  Transmission Date: 20140414
  Serious: Yes (Hospitalization)
  Sender: FDA-Public Use
  Company Number: None

PATIENT
  Sex: Female
  Weight: 111.8 kg

DRUGS (12)
  1. LITHIUM [Suspect]
     Dosage: CHRONIC
     Route: 048
  2. LITHIUM [Suspect]
     Dosage: CHRONIC
     Route: 048
  3. AMILORIDE [Concomitant]
  4. LEVOTHYROXINE [Concomitant]
  5. KLONOPIN [Concomitant]
  6. REMERON [Concomitant]
  7. COLACE [Concomitant]
  8. VIT D3 [Concomitant]
  9. ZIPRASIDONE [Concomitant]
  10. BENZTROPINE [Concomitant]
  11. DEXEDRINE [Concomitant]
  12. MIRTAZAPINE [Concomitant]

REACTIONS (6)
  - Delirium [None]
  - Toxicity to various agents [None]
  - Renal failure [None]
  - Hypernatraemia [None]
  - Encephalopathy [None]
  - Cholecystitis acute [None]
